FAERS Safety Report 10267327 (Version 1)
Quarter: 2014Q2

REPORT INFORMATION
  Report Type: Spontaneous
  Country: GB (occurrence: GB)
  Receive Date: 20140630
  Receipt Date: 20140630
  Transmission Date: 20141212
  Serious: Yes (Other)
  Sender: FDA-Public Use
  Company Number: GB-DRREDDYS-GER/UKI/14/0041390

PATIENT
  Age: 14 Year
  Sex: Female

DRUGS (4)
  1. FLUOXETINE [Suspect]
     Indication: DEPRESSION
     Route: 048
     Dates: start: 20140529, end: 20140612
  2. MICROLAX [Concomitant]
     Indication: CONSTIPATION
     Route: 054
  3. MOVICOL [Concomitant]
     Indication: CONSTIPATION
     Route: 048
  4. SODIUM PICOSULPHATE [Concomitant]
     Indication: CONSTIPATION
     Route: 048

REACTIONS (1)
  - Infection [Recovering/Resolving]
